FAERS Safety Report 18174480 (Version 1)
Quarter: 2020Q3

REPORT INFORMATION
  Report Type: Spontaneous
  Country: US (occurrence: US)
  Receive Date: 20200820
  Receipt Date: 20200820
  Transmission Date: 20201103
  Serious: No
  Sender: FDA-Public Use
  Company Number: US-DRREDDYS-USA/USA/20/0126050

PATIENT
  Age: 71 Year
  Sex: Female
  Weight: 59.85 kg

DRUGS (5)
  1. WARFARIN [Concomitant]
     Active Substance: WARFARIN
     Indication: PRODUCT USED FOR UNKNOWN INDICATION
  2. ATOMOXETINE CAPSULES USP [Suspect]
     Active Substance: ATOMOXETINE
     Indication: DISTURBANCE IN ATTENTION
     Route: 048
     Dates: start: 20200416, end: 20200420
  3. ATOMOXETINE CAPSULES USP [Suspect]
     Active Substance: ATOMOXETINE
     Indication: MEMORY IMPAIRMENT
  4. VITAMIN C [Concomitant]
     Active Substance: ASCORBIC ACID
     Indication: VITAMIN SUPPLEMENTATION
  5. ATOMOXETINE CAPSULES USP [Suspect]
     Active Substance: ATOMOXETINE
     Indication: MENTAL DISORDER

REACTIONS (4)
  - Vomiting [Unknown]
  - Abdominal pain lower [Unknown]
  - Headache [Unknown]
  - Nausea [Unknown]
